FAERS Safety Report 12989473 (Version 1)
Quarter: 2016Q4

REPORT INFORMATION
  Report Type: Spontaneous
  Country: DE (occurrence: DE)
  Receive Date: 20161201
  Receipt Date: 20161201
  Transmission Date: 20170207
  Serious: Yes (Hospitalization)
  Sender: FDA-Public Use
  Company Number: DE-SUN PHARMACEUTICAL INDUSTRIES LTD-2016RR-127774

PATIENT
  Age: 36 Year
  Sex: Female

DRUGS (12)
  1. VENLAFAXINE [Suspect]
     Active Substance: VENLAFAXINE HYDROCHLORIDE
     Dosage: 225 MG, DAILY
     Route: 048
     Dates: start: 20160126, end: 20160311
  2. DOXEPIN [Suspect]
     Active Substance: DOXEPIN
     Indication: CONDUCT DISORDER
     Dosage: 25 MG, DAILY
     Route: 048
     Dates: start: 20151204, end: 20160329
  3. AMISULPRIDE [Suspect]
     Active Substance: AMISULPRIDE
     Dosage: 100 MG, DAILY
     Route: 048
     Dates: start: 20160310, end: 20160318
  4. VENLAFAXINE [Suspect]
     Active Substance: VENLAFAXINE HYDROCHLORIDE
     Indication: CONDUCT DISORDER
     Dosage: 150 MG, DAILY
     Route: 048
     Dates: start: 20160115, end: 20160125
  5. AMISULPRIDE [Suspect]
     Active Substance: AMISULPRIDE
     Indication: MENTAL DISORDER
     Dosage: 100 MG, DAILY
     Route: 048
     Dates: start: 20151120
  6. VENLAFAXINE [Suspect]
     Active Substance: VENLAFAXINE HYDROCHLORIDE
     Indication: MENTAL DISORDER
     Dosage: 75 MG, DAILY
     Route: 048
     Dates: start: 20160108, end: 20160114
  7. AMISULPRIDE [Suspect]
     Active Substance: AMISULPRIDE
     Indication: CONDUCT DISORDER
     Dosage: 200 MG, DAILY
     Route: 048
     Dates: start: 20151121
  8. AMISULPRIDE [Suspect]
     Active Substance: AMISULPRIDE
     Dosage: 300 MG, DAILY
     Route: 048
     Dates: start: 20151218, end: 20160121
  9. VENLAFAXINE [Suspect]
     Active Substance: VENLAFAXINE HYDROCHLORIDE
     Dosage: 75 MG, DAILY
     Route: 048
     Dates: start: 20160321, end: 20160330
  10. VENLAFAXINE [Suspect]
     Active Substance: VENLAFAXINE HYDROCHLORIDE
     Dosage: 150 MG, DAILY
     Route: 048
     Dates: start: 20160312, end: 20160320
  11. AMISULPRIDE [Suspect]
     Active Substance: AMISULPRIDE
     Dosage: 200 MG, DAILY
     Route: 048
     Dates: start: 20160122, end: 20160309
  12. AMISULPRIDE [Suspect]
     Active Substance: AMISULPRIDE
     Dosage: 400 MG, DAILY
     Route: 048
     Dates: start: 20151122, end: 20151217

REACTIONS (1)
  - Liver function test abnormal [Recovering/Resolving]

NARRATIVE: CASE EVENT DATE: 20160210
